FAERS Safety Report 21464218 (Version 2)
Quarter: 2022Q4

REPORT INFORMATION
  Report Type: Spontaneous
  Country: US (occurrence: None)
  Receive Date: 20221017
  Receipt Date: 20221025
  Transmission Date: 20230113
  Serious: Yes (Death)
  Sender: FDA-Public Use
  Company Number: US-Merck Healthcare KGaA-9358067

PATIENT
  Age: 66 Year
  Sex: Male

DRUGS (2)
  1. SEROSTIM [Suspect]
     Active Substance: SOMATROPIN
     Indication: HIV infection
     Dates: start: 20220901
  2. SEROSTIM [Suspect]
     Active Substance: SOMATROPIN
     Indication: Cachexia

REACTIONS (1)
  - Death [Fatal]

NARRATIVE: CASE EVENT DATE: 20220929
